FAERS Safety Report 5655773-7 (Version None)
Quarter: 2008Q1

REPORT INFORMATION
  Report Type: 
  Country: None (occurrence: None)
  Receive Date: 20080307
  Receipt Date: 20080222
  Transmission Date: 20080703
  Serious: No
  Sender: FDA-Public Use
  Company Number: US-AMGEN-STX264752

PATIENT
  Sex: Female

DRUGS (3)
  1. ENBREL [Suspect]
     Indication: PSORIASIS
     Route: 058
     Dates: start: 20080122
  2. DOXEPIN HCL [Concomitant]
  3. ZOLOFT [Concomitant]

REACTIONS (2)
  - PHARYNGITIS [None]
  - VIRAL UPPER RESPIRATORY TRACT INFECTION [None]
